FAERS Safety Report 8199239-1 (Version None)
Quarter: 2012Q1

REPORT INFORMATION
  Report Type: 
  Country: None (occurrence: None)
  Receive Date: 20120309
  Receipt Date: 20120229
  Transmission Date: 20120608
  Serious: Yes (Hospitalization, Other)
  Sender: FDA-Public Use
  Company Number: FR-ELI_LILLY_AND_COMPANY-FR201202008200

PATIENT
  Sex: Female

DRUGS (19)
  1. PRAVASTATIN [Concomitant]
     Dosage: UNK
  2. PAROXETINE [Concomitant]
     Dosage: UNK
  3. IMOVAN [Concomitant]
     Dosage: UNK
  4. CALCIUM CARBONATE [Concomitant]
     Dosage: UNK
  5. LASIX [Concomitant]
     Dosage: UNK
  6. LOCOID                             /00028605/ [Concomitant]
     Dosage: UNK
  7. SORIATANE [Concomitant]
     Dosage: UNK
  8. TERBINAFINE HCL [Concomitant]
     Dosage: UNK
  9. HUMALOG [Suspect]
     Indication: TYPE 1 DIABETES MELLITUS
  10. POLYETHYLENE GLYCOL [Concomitant]
     Dosage: UNK
  11. RISPERIDONE [Concomitant]
     Dosage: UNK
  12. PERINDOPRIL ERBUMINE [Suspect]
     Dosage: UNK
  13. DILTIAZEM HCL [Concomitant]
     Dosage: UNK
  14. LANTUS [Suspect]
     Dosage: UNK
  15. FERROUS SULFATE TAB [Concomitant]
     Dosage: UNK
  16. BETNEVAL                           /00008503/ [Concomitant]
     Dosage: UNK
  17. CLOPIDOGREL BISULFATE AND ASPIRIN [Suspect]
     Dosage: UNK
  18. LEVOTHYROXINE SODIUM [Concomitant]
     Dosage: UNK
  19. VITABACT [Concomitant]
     Dosage: UNK

REACTIONS (5)
  - BRAIN OEDEMA [None]
  - SUBARACHNOID HAEMORRHAGE [None]
  - HYPOGLYCAEMIA [None]
  - FALL [None]
  - HEAD INJURY [None]
